FAERS Safety Report 15495231 (Version 1)
Quarter: 2018Q4

REPORT INFORMATION
  Report Type: Spontaneous
  Country: US (occurrence: US)
  Receive Date: 20181012
  Receipt Date: 20181012
  Transmission Date: 20190205
  Serious: Yes (Hospitalization)
  Sender: FDA-Public Use
  Company Number: None

PATIENT
  Age: 87 Year
  Sex: Male
  Weight: 92.99 kg

DRUGS (14)
  1. SYNTHROID 150MCG [Concomitant]
  2. SPIRONOLACTONE 25MG [Concomitant]
     Active Substance: SPIRONOLACTONE
  3. MIRTAZAPINE 7.5MG [Concomitant]
     Active Substance: MIRTAZAPINE
  4. MEMANTINE. [Concomitant]
     Active Substance: MEMANTINE
  5. COLCRYS [Concomitant]
     Active Substance: COLCHICINE
  6. FUROSEMIDE 20MG [Concomitant]
     Active Substance: FUROSEMIDE
  7. CAPECITABINE. [Suspect]
     Active Substance: CAPECITABINE
     Indication: COLON CANCER
     Route: 048
     Dates: start: 20180901
  8. VITAMIN B12 [Concomitant]
     Active Substance: CYANOCOBALAMIN
  9. VITAMIN D3 [Concomitant]
     Active Substance: CHOLECALCIFEROL
  10. TRAZODONE [Concomitant]
     Active Substance: TRAZODONE HYDROCHLORIDE
  11. DONEPEZIL 10MG [Concomitant]
  12. ATORVASTATIN 10MG [Concomitant]
     Active Substance: ATORVASTATIN
  13. ALLOPURINOL 100MG [Concomitant]
     Active Substance: ALLOPURINOL
  14. VITAMIN B-1 [Concomitant]
     Active Substance: THIAMINE HYDROCHLORIDE

REACTIONS (4)
  - Asthenia [None]
  - Therapy cessation [None]
  - Blood pressure decreased [None]
  - Oedema peripheral [None]

NARRATIVE: CASE EVENT DATE: 20181006
